FAERS Safety Report 7284346-8 (Version None)
Quarter: 2011Q1

REPORT INFORMATION
  Report Type: 
  Country: None (occurrence: None)
  Receive Date: 20110126
  Receipt Date: 20110112
  Transmission Date: 20110831
  Serious: Yes (Hospitalization, Other)
  Sender: FDA-Public Use
  Company Number: 2011S1000023

PATIENT
  Sex: Female

DRUGS (7)
  1. PRILOSEC [Concomitant]
  2. DARVOCET-N 100 [Suspect]
     Indication: BACK PAIN
     Dosage: 200 MG; Q4H; PO
     Route: 048
     Dates: start: 19950101, end: 20110101
  3. FLEXERIL [Concomitant]
  4. DIGOXIN [Concomitant]
  5. PLAVIX [Concomitant]
  6. LISINOPRIL [Concomitant]
  7. FLUID PILL [Concomitant]

REACTIONS (6)
  - REFUSAL OF TREATMENT BY PATIENT [None]
  - DYSPNOEA [None]
  - TRANSIENT ISCHAEMIC ATTACK [None]
  - FATIGUE [None]
  - CEREBROVASCULAR ACCIDENT [None]
  - ATRIAL FIBRILLATION [None]
